FAERS Safety Report 9185997 (Version 1)
Quarter: 2013Q1

REPORT INFORMATION
  Report Type: Spontaneous
  Country: GB (occurrence: GB)
  Receive Date: 20130325
  Receipt Date: 20130325
  Transmission Date: 20140127
  Serious: Yes (Other)
  Sender: FDA-Public Use
  Company Number: GB-ASTRAZENECA-2013SE16910

PATIENT
  Age: 49 Year
  Sex: Male
  Weight: 95 kg

DRUGS (10)
  1. CRESTOR [Suspect]
     Route: 048
     Dates: start: 20130212
  2. AMOXICILLIN [Concomitant]
     Dates: start: 20121230, end: 20130106
  3. ASPIRIN [Concomitant]
     Dates: start: 20130206
  4. CLOTRIMAZOLE [Concomitant]
     Dates: start: 20121230, end: 20130109
  5. GLYCERYL TRINITRATE [Concomitant]
     Dates: start: 20130206
  6. PERINDOPRIL ERBUMINE [Concomitant]
     Dates: start: 20130206
  7. PRASUGREL [Concomitant]
     Dates: start: 20130206
  8. QVAR [Concomitant]
     Dates: start: 20121105, end: 20121203
  9. QVAR [Concomitant]
     Dates: start: 20130109, end: 20130206
  10. VENTOLIN [Concomitant]
     Dates: start: 20121105

REACTIONS (1)
  - Nocturia [Recovered/Resolved]
